FAERS Safety Report 18086611 (Version 1)
Quarter: 2020Q3

REPORT INFORMATION
  Report Type: Spontaneous
  Country: US (occurrence: US)
  Receive Date: 20200729
  Receipt Date: 20200729
  Transmission Date: 20201103
  Serious: Yes (Hospitalization)
  Sender: FDA-Public Use
  Company Number: NVSC2020US208806

PATIENT
  Age: 33 Year
  Sex: Female

DRUGS (1)
  1. LEVOFLOXACIN. [Suspect]
     Active Substance: LEVOFLOXACIN
     Indication: PNEUMONIA
     Dosage: UNK
     Route: 065

REACTIONS (7)
  - Dermatomyositis [Unknown]
  - Rhabdomyolysis [Unknown]
  - Odynophagia [Recovered/Resolved]
  - Rash [Unknown]
  - Dysphagia [Unknown]
  - Gait disturbance [Unknown]
  - Muscular weakness [Unknown]
